FAERS Safety Report 13723913 (Version 1)
Quarter: 2017Q3

REPORT INFORMATION
  Report Type: Spontaneous
  Country: US (occurrence: US)
  Receive Date: 20170706
  Receipt Date: 20170706
  Transmission Date: 20171127
  Serious: No
  Sender: FDA-Public Use
  Company Number: US-JNJFOC-20160801022

PATIENT
  Age: 81 Year
  Sex: Female
  Weight: 54 kg

DRUGS (11)
  1. ALENDRONATE [Concomitant]
     Active Substance: ALENDRONATE SODIUM
     Route: 065
  2. CIPROFLOXACIN. [Concomitant]
     Active Substance: CIPROFLOXACIN
     Route: 065
  3. DILTIAZEM. [Concomitant]
     Active Substance: DILTIAZEM
     Route: 065
  4. METHOTREXATE. [Concomitant]
     Active Substance: METHOTREXATE
     Route: 065
  5. PREDNISONE. [Concomitant]
     Active Substance: PREDNISONE
     Route: 065
  6. RANITIDINE. [Concomitant]
     Active Substance: RANITIDINE
     Route: 065
  7. WARFARIN [Concomitant]
     Active Substance: WARFARIN
     Route: 065
  8. REMICADE [Suspect]
     Active Substance: INFLIXIMAB
     Indication: RHEUMATOID ARTHRITIS
     Dosage: 6 TO 8 WEEKS
     Route: 042
     Dates: start: 20160620
  9. METRONIDAZOLE. [Concomitant]
     Active Substance: METRONIDAZOLE
     Route: 065
  10. PROCHLORPERAZINE. [Concomitant]
     Active Substance: PROCHLORPERAZINE
     Route: 065
  11. FOLIC ACID. [Concomitant]
     Active Substance: FOLIC ACID
     Route: 065

REACTIONS (2)
  - Drug ineffective [Unknown]
  - Infection [Unknown]

NARRATIVE: CASE EVENT DATE: 201606
